FAERS Safety Report 21664185 (Version 1)
Quarter: 2022Q4

REPORT INFORMATION
  Report Type: Spontaneous
  Country: CH (occurrence: CH)
  Receive Date: 20221130
  Receipt Date: 20221130
  Transmission Date: 20230112
  Serious: Yes (Hospitalization, Other)
  Sender: FDA-Public Use
  Company Number: None

PATIENT
  Sex: Male

DRUGS (19)
  1. CYCLOSPORINE [Suspect]
     Active Substance: CYCLOSPORINE
     Indication: Immunosuppression
     Dosage: 1 DOSAGE FORM, CUMULATIVE 3 DOSING UNITS ENTERALLY VIA THE PROBE
     Route: 048
     Dates: start: 20220427, end: 20220428
  2. CELLCEPT [Suspect]
     Active Substance: MYCOPHENOLATE MOFETIL
     Indication: Immunosuppression
     Dosage: 1 DOSAGE FORM, CUMULATIVELY 3 DOSAGE UNITS ENTERALLY VIA TUBE
     Route: 048
     Dates: start: 20220427, end: 20220428
  3. HEPARIN [Suspect]
     Active Substance: HEPARIN SODIUM
     Indication: Embolism
     Dosage: 1 DOSAGE FORM
     Route: 065
     Dates: start: 20220428
  4. SOLU-MEDROL [Suspect]
     Active Substance: METHYLPREDNISOLONE SODIUM SUCCINATE
     Indication: Immunosuppression
     Dosage: 1 DOSAGE FORM
     Route: 042
     Dates: start: 20220427, end: 20220428
  5. METOPROLOL [Concomitant]
     Active Substance: METOPROLOL
     Indication: Product used for unknown indication
     Dosage: 2 MG, BID, SUSPENSION 2 MG/ML ENTERALLY VIA TUBE 2 MG 1-0-1
     Route: 048
  6. AMLODIPINE BESYLATE [Concomitant]
     Active Substance: AMLODIPINE BESYLATE
     Indication: Product used for unknown indication
     Dosage: 2 MG, BID, SUSP 1 MG/ML ENTERALLY VIA TUBE 2 MG 1-0-1
     Route: 048
  7. VALSARTAN [Concomitant]
     Active Substance: VALSARTAN
     Indication: Product used for unknown indication
     Dosage: 20 MG, QD, 4 MG/ML ENTERAL VIA TUBE
     Route: 048
  8. CHOLECALCIFEROL [Concomitant]
     Active Substance: CHOLECALCIFEROL
     Indication: Product used for unknown indication
     Dosage: 2500 IU, QD (5 DROPS IN MOUTH)
     Route: 048
  9. ALFACALCIDOL [Concomitant]
     Active Substance: ALFACALCIDOL
     Indication: Product used for unknown indication
     Dosage: 1.3 UG, QD (2 MCG/1 ML, 1.2 MCG (12 DROPS) IN MOUTH)
     Route: 048
  10. ZITHROMAX [Concomitant]
     Active Substance: AZITHROMYCIN DIHYDRATE
     Indication: Product used for unknown indication
     Dosage: 88 MG, 200 MG/5 ML FOR SUSP (AZITHROMYCIN) 88 MG 3 TIMES A WEEK ORALLY
     Route: 048
  11. SULFAMETHOXAZOLE\TRIMETHOPRIM [Concomitant]
     Active Substance: SULFAMETHOXAZOLE\TRIMETHOPRIM
     Indication: Product used for unknown indication
     Dosage: 2 ML, QD (SYRUP CHILD 200/40 MG PER 5 M (SULFAMETHOXAZOLE, TRIMETHOPRIM) 2 ML/DAY ORALLY)
     Route: 048
  12. MULTILIND [Concomitant]
     Indication: Product used for unknown indication
     Dosage: 1 ML, TID (1-1-1-0)
     Route: 048
  13. NATRIUM BICARBONAT [Concomitant]
     Indication: Product used for unknown indication
     Dosage: 2 ML, BID (CONC 8.4 PERCENT (10 MMOL/10 ML) (SODIUM HYDROGEN CARBONATE) OFF-LABEL )
     Route: 048
  14. CALCIUMGLUCONAT BRAUN [Concomitant]
     Indication: Product used for unknown indication
     Dosage: 10 ML, TID (CONC 8.4 PERCENT (10 MMOL/10 ML) (SODIUM HYDROGEN CARBONATE) OFF-LABEL )
     Route: 048
  15. NEXIUM [Concomitant]
     Active Substance: ESOMEPRAZOLE MAGNESIUM
     Indication: Product used for unknown indication
     Dosage: 8 MG, QD (NEXIUM GRAN 10 MG FOR ORAL SUSP (ESOMEPRAZOLE) )
     Route: 048
  16. OXYBUTYNIN [Concomitant]
     Active Substance: OXYBUTYNIN
     Indication: Product used for unknown indication
     Dosage: 1.25 MG, QD (5 MGENTERALLY VIA SONDE1.25 MG 1 TIME A DAY)
     Route: 048
  17. ACETAMINOPHEN [Concomitant]
     Active Substance: ACETAMINOPHEN
     Indication: Product used for unknown indication
     Dosage: 130 MG, PRN (IN RESERVE)
     Route: 048
  18. ATROVENT [Concomitant]
     Active Substance: IPRATROPIUM BROMIDE
     Indication: Product used for unknown indication
     Dosage: 1 DOSAGE FORM, PRN (INHALATION SOLUTION 0.25 MG/2 ML MONODOS (IPRATROPIUM) IN RESERVE INHALED))
     Route: 055
  19. PULMICORT TURBUHALER [Concomitant]
     Active Substance: BUDESONIDE
     Indication: Product used for unknown indication
     Dosage: 1 DOSAGE FORM, PRN (INHALED SUSP 0.25 MG/2ML MONODOS (BUDESONIDE) IN RESERVE INHALED))
     Route: 055

REACTIONS (2)
  - Intra-abdominal haemorrhage [Recovering/Resolving]
  - Rhabdomyolysis [Recovering/Resolving]

NARRATIVE: CASE EVENT DATE: 20220428
